FAERS Safety Report 16031930 (Version 1)
Quarter: 2019Q1

REPORT INFORMATION
  Report Type: Other
  Country: None (occurrence: US)
  Receive Date: 20190304
  Receipt Date: 20190304
  Transmission Date: 20190418
  Serious: Yes (Death, Hospitalization)
  Sender: FDA-Public Use
  Company Number: US-MEDAC PHARMA, INC.-2063523

PATIENT
  Age: 18 Year
  Weight: 80.6 kg

DRUGS (6)
  1. CYTARABINE. [Suspect]
     Active Substance: CYTARABINE
  2. ONCASPAR [Suspect]
     Active Substance: PEGASPARGASE
  3. PREDNISONE. [Suspect]
     Active Substance: PREDNISONE
  4. VINCRISTINE SULFATE. [Suspect]
     Active Substance: VINCRISTINE SULFATE
  5. METHOTREXATE. [Suspect]
     Active Substance: METHOTREXATE
  6. DAUNORUBICIN HYDROCHLORIDE. [Suspect]
     Active Substance: DAUNORUBICIN HYDROCHLORIDE

REACTIONS (9)
  - Sinusitis fungal [Unknown]
  - Bacteraemia [Unknown]
  - Pancytopenia [Fatal]
  - Heart rate decreased [Unknown]
  - Coagulopathy [Unknown]
  - Treatment failure [Fatal]
  - Pancreatitis acute [Unknown]
  - Blood pressure decreased [Unknown]
  - Pneumonia [Unknown]

NARRATIVE: CASE EVENT DATE: 20180916
